FAERS Safety Report 25721118 (Version 1)
Quarter: 2025Q3

REPORT INFORMATION
  Report Type: Spontaneous
  Country: US (occurrence: US)
  Receive Date: 20250825
  Receipt Date: 20250825
  Transmission Date: 20251020
  Serious: No
  Sender: BIONPHARMA INC.
  Company Number: US-Bion-015208

PATIENT

DRUGS (1)
  1. FLUVOXAMINE MALEATE [Suspect]
     Active Substance: FLUVOXAMINE MALEATE
     Indication: Product used for unknown indication

REACTIONS (3)
  - Nausea [Unknown]
  - Product taste abnormal [Unknown]
  - Product substitution issue [Unknown]
